FAERS Safety Report 19140124 (Version 1)
Quarter: 2021Q2

REPORT INFORMATION
  Report Type: Report from Study
  Country: US (occurrence: US)
  Receive Date: 20210415
  Receipt Date: 20210415
  Transmission Date: 20210717
  Serious: No
  Sender: FDA-Public Use
  Company Number: NVSC2021US081053

PATIENT
  Age: 72 Year
  Sex: Female

DRUGS (2)
  1. PIQRAY [Suspect]
     Active Substance: ALPELISIB
     Indication: BREAST CANCER
     Dosage: 300 MG, QD
     Route: 048
  2. PIQRAY [Suspect]
     Active Substance: ALPELISIB
     Dosage: 250 MG
     Route: 065
     Dates: start: 202101

REACTIONS (6)
  - Diarrhoea [Unknown]
  - Fatigue [Recovering/Resolving]
  - Drug intolerance [Unknown]
  - Hyperglycaemia [Recovering/Resolving]
  - Rash pruritic [Recovering/Resolving]
  - Alopecia [Unknown]

NARRATIVE: CASE EVENT DATE: 202101
